FAERS Safety Report 17243943 (Version 1)
Quarter: 2020Q1

REPORT INFORMATION
  Report Type: Spontaneous
  Country: US (occurrence: US)
  Receive Date: 20200107
  Receipt Date: 20200107
  Transmission Date: 20200409
  Serious: Yes (Hospitalization, Other)
  Sender: FDA-Public Use
  Company Number: US-JNJFOC-20200105114

PATIENT
  Age: 54 Year
  Sex: Male

DRUGS (1)
  1. INVOKANA [Suspect]
     Active Substance: CANAGLIFLOZIN
     Indication: PRODUCT USED FOR UNKNOWN INDICATION
     Dosage: 100, 300 MG
     Route: 048

REACTIONS (3)
  - Osteomyelitis acute [Unknown]
  - Diabetic foot infection [Unknown]
  - Toe amputation [Unknown]

NARRATIVE: CASE EVENT DATE: 2018
